FAERS Safety Report 17625617 (Version 1)
Quarter: 2020Q2

REPORT INFORMATION
  Report Type: Report from Study
  Country: None (occurrence: US)
  Receive Date: 20200404
  Receipt Date: 20200404
  Transmission Date: 20200713
  Serious: Yes (Other)
  Sender: FDA-Public Use
  Company Number: US-ABBVIE-20K-163-3349127-00

PATIENT
  Sex: Male

DRUGS (1)
  1. HUMIRA [Suspect]
     Active Substance: ADALIMUMAB
     Indication: CROHN^S DISEASE
     Dosage: CITRATE FREE
     Route: 058

REACTIONS (6)
  - Autoimmune disorder [Recovering/Resolving]
  - Metastatic cutaneous Crohn^s disease [Recovering/Resolving]
  - Hypertrophic cardiomyopathy [Recovering/Resolving]
  - Muscle spasms [Recovering/Resolving]
  - Injection site pain [Recovered/Resolved]
  - Pyoderma gangrenosum [Recovering/Resolving]
